FAERS Safety Report 16371007 (Version 1)
Quarter: 2019Q2

REPORT INFORMATION
  Report Type: Other
  Country: GB (occurrence: GB)
  Receive Date: 20190530
  Receipt Date: 20190530
  Transmission Date: 20190711
  Serious: Yes (Death)
  Sender: FDA-Public Use
  Company Number: GB-HERITAGE PHARMACEUTICALS-2019HTG00238

PATIENT
  Age: 79 Year
  Sex: Male

DRUGS (8)
  1. FOLIC ACID. [Concomitant]
     Active Substance: FOLIC ACID
     Dosage: 5 G, 1X/WEEK
  2. SULFASALAZINE. [Concomitant]
     Active Substance: SULFASALAZINE
     Dosage: 1000 MG, 1X/DAY
  3. FLUOXETINE [Suspect]
     Active Substance: FLUOXETINE HYDROCHLORIDE
     Indication: DEPRESSION
     Dosage: 30 MG, 1X/DAY
  4. DIGOXIN. [Concomitant]
     Active Substance: DIGOXIN
     Indication: ATRIAL FIBRILLATION
     Dosage: 250 ?G, 1X/DAY
  5. METHOTREXATE. [Suspect]
     Active Substance: METHOTREXATE
     Indication: SERONEGATIVE ARTHRITIS
     Dosage: 5 MG, 1X/WEEK
  6. PRAZOSIN. [Concomitant]
     Active Substance: PRAZOSIN
     Indication: BLOOD PRESSURE INCREASED
     Dosage: 1 MG, 1X/DAY
  7. WARFARIN [Concomitant]
     Active Substance: WARFARIN
     Indication: ATRIAL FIBRILLATION
     Dosage: VARIABLE DOSE
  8. CO-DYDRAMOL [Concomitant]
     Active Substance: ACETAMINOPHEN\DIHYDROCODEINE
     Indication: ARTHRITIS
     Dosage: UP TO 2 DOSAGE UNITS PER DAY

REACTIONS (1)
  - Pneumonia [Fatal]
